FAERS Safety Report 7840717-X (Version None)
Quarter: 2011Q4

REPORT INFORMATION
  Report Type: 
  Country: None (occurrence: None)
  Receive Date: 20111021
  Receipt Date: 20111021
  Transmission Date: 20120403
  Serious: Yes (Hospitalization)
  Sender: FDA-Public Use
  Company Number: None

PATIENT
  Age: 56 Year
  Sex: Male
  Weight: 70 kg

DRUGS (2)
  1. RIBAVIRIN [Suspect]
     Indication: HEPATITIS C
     Dosage: 200 MG BID PO ; 135 MG QWEEK SQ
     Route: 048
     Dates: start: 20110610
  2. RIBAVIRIN [Suspect]
     Indication: HEPATITIS C
     Dosage: 200 MG BID PO ; 135 MG QWEEK SQ
     Route: 048
     Dates: start: 20110610

REACTIONS (1)
  - PANCYTOPENIA [None]
